FAERS Safety Report 4355488-1 (Version None)
Quarter: 2004Q2

REPORT INFORMATION
  Report Type: 
  Country: None (occurrence: None)
  Receive Date: 20040505
  Receipt Date: 20040422
  Transmission Date: 20050107
  Serious: Yes (Death, Life-Threatening)
  Sender: FDA-Public Use
  Company Number: 2004023730

PATIENT
  Sex: Female

DRUGS (1)
  1. EPANUTIN INFATABS (PHENYTOIN SODIUM) [Suspect]
     Indication: CONVULSION
     Dosage: 300 MG (QHS), ORAL
     Route: 048

REACTIONS (2)
  - DYSPHAGIA [None]
  - MARKEDLY REDUCED DIETARY INTAKE [None]
